FAERS Safety Report 9206846 (Version 1)
Quarter: 2013Q2

REPORT INFORMATION
  Report Type: Spontaneous
  Country: DK (occurrence: FR)
  Receive Date: 20130403
  Receipt Date: 20130403
  Transmission Date: 20140414
  Serious: Yes (Hospitalization)
  Sender: FDA-Public Use
  Company Number: FR-FRI-1000043956

PATIENT
  Age: 89 Year
  Sex: Female

DRUGS (4)
  1. ESCITALOPRAM [Suspect]
     Dosage: 1 DF
     Route: 048
  2. LERCAPRESS [Suspect]
     Indication: HYPERTENSION
     Dosage: 20 MG/10 MG
     Route: 048
     Dates: end: 20120805
  3. LEXOMIL [Suspect]
     Dosage: 0.75 DF
     Route: 048
     Dates: end: 20120731
  4. LOXAPAC [Suspect]
     Route: 048
     Dates: end: 20120805

REACTIONS (4)
  - Loss of consciousness [Recovered/Resolved]
  - Vomiting [Recovered/Resolved]
  - Urinary retention [Recovered/Resolved]
  - Hyperthermia [Recovered/Resolved]
